FAERS Safety Report 22135719 (Version 1)
Quarter: 2023Q1

REPORT INFORMATION
  Report Type: Spontaneous
  Country: US (occurrence: None)
  Receive Date: 20230324
  Receipt Date: 20230324
  Transmission Date: 20230417
  Serious: No
  Sender: FDA-Public Use
  Company Number: 2023A045558

PATIENT
  Age: 842 Month
  Sex: Female
  Weight: 104.3 kg

DRUGS (4)
  1. BYETTA [Suspect]
     Active Substance: EXENATIDE
     Indication: Diabetes mellitus
     Route: 058
     Dates: end: 2020
  2. BYDUREON BCISE [Suspect]
     Active Substance: EXENATIDE
     Indication: Diabetes mellitus
     Route: 058
     Dates: start: 20230215
  3. VICTOZA [Suspect]
     Active Substance: LIRAGLUTIDE
     Indication: Diabetes mellitus
  4. METFORMIN [Concomitant]
     Active Substance: METFORMIN HYDROCHLORIDE

REACTIONS (9)
  - Viral infection [Unknown]
  - Feeling abnormal [Unknown]
  - Diabetes mellitus inadequate control [Not Recovered/Not Resolved]
  - Injection site deformation [Unknown]
  - Device leakage [Recovered/Resolved]
  - Incorrect dose administered by device [Unknown]
  - Product dose omission issue [Not Recovered/Not Resolved]
  - Insurance issue [Unknown]
  - Device malfunction [Unknown]

NARRATIVE: CASE EVENT DATE: 20230201
